FAERS Safety Report 9276974 (Version 1)
Quarter: 2013Q2

REPORT INFORMATION
  Report Type: Spontaneous
  Country: BR (occurrence: BR)
  Receive Date: 20130507
  Receipt Date: 20130507
  Transmission Date: 20140414
  Serious: Yes (Other)
  Sender: FDA-Public Use
  Company Number: BR-PFIZER INC-2013136057

PATIENT
  Age: 68 Year
  Sex: Male

DRUGS (4)
  1. XALATAN [Suspect]
     Indication: INTRAOCULAR PRESSURE TEST
     Dosage: UNK
  2. ALPHAGAN [Concomitant]
  3. FLUTINOL [Concomitant]
  4. TIMOLOL [Concomitant]

REACTIONS (1)
  - Corneal decompensation [Unknown]
